FAERS Safety Report 7502251-6 (Version None)
Quarter: 2011Q2

REPORT INFORMATION
  Report Type: 
  Country: None (occurrence: None)
  Receive Date: 20110523
  Receipt Date: 20110523
  Transmission Date: 20111010
  Serious: Yes (Other)
  Sender: FDA-Public Use
  Company Number: None

PATIENT
  Age: 71 Year
  Sex: Male
  Weight: 79.3795 kg

DRUGS (6)
  1. AVODART [Concomitant]
  2. NEFEDIPINE [Concomitant]
  3. NIRAVAM -ALPROZALAM- [Concomitant]
  4. TAMSULOSIN HCL [Suspect]
     Indication: BENIGN PROSTATIC HYPERPLASIA
     Dosage: 0.4 MG  ONCE DAILY PO
     Route: 048
     Dates: start: 20101117, end: 20110120
  5. OMEPRAZOLE [Concomitant]
  6. LORAZEPAM [Concomitant]

REACTIONS (4)
  - PRODUCT SUBSTITUTION ISSUE [None]
  - MUSCLE TIGHTNESS [None]
  - FATIGUE [None]
  - PERIPHERAL COLDNESS [None]
